FAERS Safety Report 21247878 (Version 1)
Quarter: 2022Q3

REPORT INFORMATION
  Report Type: Spontaneous
  Country: US (occurrence: None)
  Receive Date: 20220824
  Receipt Date: 20220824
  Transmission Date: 20221026
  Serious: Yes (Other)
  Sender: FDA-Public Use
  Company Number: US-ROCHE-3162414

PATIENT
  Age: 85 Year
  Sex: Male
  Weight: 79.4 kg

DRUGS (6)
  1. ESBRIET [Suspect]
     Active Substance: PIRFENIDONE
     Indication: Product used for unknown indication
     Route: 048
     Dates: end: 20220604
  2. TYVASO [Suspect]
     Active Substance: TREPROSTINIL
     Indication: Pulmonary arterial hypertension
     Route: 065
     Dates: start: 20220428
  3. TYVASO [Suspect]
     Active Substance: TREPROSTINIL
     Dosage: 18-72 UG
     Route: 065
     Dates: start: 2022
  4. TYVASO [Suspect]
     Active Substance: TREPROSTINIL
     Route: 065
     Dates: start: 2022
  5. ELIQUIS [Concomitant]
     Active Substance: APIXABAN
  6. TADALAFIL [Concomitant]
     Active Substance: TADALAFIL

REACTIONS (6)
  - Depression suicidal [Recovered/Resolved]
  - Upper respiratory tract infection [Recovered/Resolved]
  - Rash pruritic [Recovered/Resolved]
  - Sunburn [Recovered/Resolved]
  - Skin discolouration [Unknown]
  - Rash erythematous [Recovered/Resolved]

NARRATIVE: CASE EVENT DATE: 20220525
